FAERS Safety Report 25954503 (Version 1)
Quarter: 2025Q4

REPORT INFORMATION
  Report Type: Spontaneous
  Country: EU (occurrence: EU)
  Receive Date: 20251024
  Receipt Date: 20251024
  Transmission Date: 20260119
  Serious: Yes (Death, Other)
  Sender: ABBVIE
  Company Number: EU-LUNDBECK-DKLU4020623

PATIENT
  Age: 61 Year

DRUGS (1)
  1. CITALOPRAM [Suspect]
     Active Substance: CITALOPRAM
     Indication: Somatic symptom disorder
     Route: 065

REACTIONS (1)
  - Completed suicide [Fatal]
